FAERS Safety Report 20713225 (Version 1)
Quarter: 2022Q2

REPORT INFORMATION
  Report Type: Spontaneous
  Country: US (occurrence: None)
  Receive Date: 20220415
  Receipt Date: 20220415
  Transmission Date: 20220721
  Serious: Yes (Hospitalization, Other)
  Sender: FDA-Public Use
  Company Number: 2022A145002

PATIENT
  Age: 767 Month
  Sex: Female

DRUGS (1)
  1. SYMBICORT [Suspect]
     Active Substance: BUDESONIDE\FORMOTEROL FUMARATE DIHYDRATE
     Indication: Asthma
     Dosage: 160/4.5 MCG, TWO TIMES A DAY
     Route: 055
     Dates: start: 202101

REACTIONS (14)
  - Pneumonia [Unknown]
  - Cataract [Unknown]
  - Eye disorder [Unknown]
  - Vitreous floaters [Unknown]
  - Visual impairment [Unknown]
  - Lens disorder [Unknown]
  - Injury [Unknown]
  - Eye swelling [Unknown]
  - Multiple allergies [Unknown]
  - Dust allergy [Unknown]
  - Memory impairment [Unknown]
  - Lung disorder [Unknown]
  - Off label use [Unknown]
  - Drug effective for unapproved indication [Unknown]

NARRATIVE: CASE EVENT DATE: 20211101
